FAERS Safety Report 6788543-7 (Version None)
Quarter: 2010Q2

REPORT INFORMATION
  Report Type: 
  Country: None (occurrence: None)
  Receive Date: 20100623
  Receipt Date: 20080329
  Transmission Date: 20101027
  Serious: No
  Sender: FDA-Public Use
  Company Number: US-PFIZER INC-2008020892

PATIENT
  Sex: Female
  Weight: 59.09 kg

DRUGS (1)
  1. DEPO-PROVERA SUSPENSION/INJ [Suspect]
     Indication: CONTRACEPTION
     Route: 030
     Dates: start: 20071213

REACTIONS (2)
  - EXPIRED DRUG ADMINISTERED [None]
  - WEIGHT INCREASED [None]
